FAERS Safety Report 6682026-0 (Version None)
Quarter: 2010Q2

REPORT INFORMATION
  Report Type: 
  Country: None (occurrence: None)
  Receive Date: 20100414
  Receipt Date: 20100414
  Transmission Date: 20101027
  Serious: Yes (Other)
  Sender: FDA-Public Use
  Company Number: None

PATIENT
  Age: 49 Year
  Sex: Female
  Weight: 69.8539 kg

DRUGS (1)
  1. SUBOXONE [Suspect]
     Indication: DRUG DEPENDENCE
     Dosage: 10/2.5 MG SL DAILY TRANSDERMAL
     Route: 062
     Dates: start: 20100125, end: 20100409

REACTIONS (1)
  - OEDEMA PERIPHERAL [None]
